FAERS Safety Report 5354176-2 (Version None)
Quarter: 2007Q2

REPORT INFORMATION
  Report Type: 
  Country: None (occurrence: None)
  Receive Date: 20070612
  Receipt Date: 20070531
  Transmission Date: 20071010
  Serious: No
  Sender: FDA-Public Use
  Company Number: US-ASTRAZENECA-2006UW10784

PATIENT
  Age: 37 Year
  Sex: Female
  Weight: 101.8 kg

DRUGS (5)
  1. SEROQUEL [Suspect]
     Indication: INSOMNIA
     Route: 048
     Dates: start: 20011101
  2. ZYPREXA/SYMBYAX (OLANZAPINE) [Concomitant]
  3. ZOLOFT [Concomitant]
  4. CLONAZEPAM [Concomitant]
  5. METFORMIN HCL [Concomitant]
     Indication: DIABETES MELLITUS NON-INSULIN-DEPENDENT
     Dates: start: 20040101

REACTIONS (1)
  - DIABETES MELLITUS [None]
